FAERS Safety Report 18821682 (Version 3)
Quarter: 2023Q4

REPORT INFORMATION
  Report Type: Report from Study
  Country: US (occurrence: US)
  Receive Date: 20210202
  Receipt Date: 20231215
  Transmission Date: 20240109
  Serious: Yes (Hospitalization, Other)
  Sender: FDA-Public Use
  Company Number: US-GW PHARMA-202101USGW00312

PATIENT

DRUGS (8)
  1. EPIDIOLEX [Suspect]
     Active Substance: CANNABIDIOL
     Indication: Lennox-Gastaut syndrome
     Dosage: UNK
     Route: 048
  2. EPIDIOLEX [Suspect]
     Active Substance: CANNABIDIOL
     Dosage: 2.5 MILLILITER, BID (G TUBE)
  3. EPINEPHRINE [Concomitant]
     Active Substance: EPINEPHRINE
     Indication: Product used for unknown indication
     Dosage: 0.15MG/0.3 AUTO INJCT
  4. KEPPRA [Concomitant]
     Active Substance: LEVETIRACETAM
     Indication: Product used for unknown indication
  5. BANZEL [Concomitant]
     Active Substance: RUFINAMIDE
     Indication: Product used for unknown indication
  6. VALIUM [Concomitant]
     Active Substance: DIAZEPAM
     Indication: Product used for unknown indication
  7. VALTOCO [Concomitant]
     Active Substance: DIAZEPAM
     Indication: Product used for unknown indication
     Dosage: 5MG/SPRAY
  8. CLONIDINE HYDROCHLORIDE [Concomitant]
     Active Substance: CLONIDINE HYDROCHLORIDE
     Indication: Product used for unknown indication

REACTIONS (14)
  - Dolichocolon [Unknown]
  - Faecaloma [Unknown]
  - Flatulence [Unknown]
  - Urinary tract infection [Unknown]
  - Vomiting [Unknown]
  - Seizure [Unknown]
  - Seizure [Unknown]
  - Seizure [Unknown]
  - Megacolon [Unknown]
  - Nasopharyngitis [Unknown]
  - Weight decreased [Unknown]
  - Dehydration [Unknown]
  - Muscular weakness [Unknown]
  - Dysphagia [Unknown]

NARRATIVE: CASE EVENT DATE: 20230301
